FAERS Safety Report 19750628 (Version 3)
Quarter: 2021Q3

REPORT INFORMATION
  Report Type: Report from Study
  Country: US (occurrence: US)
  Receive Date: 20210826
  Receipt Date: 20210922
  Transmission Date: 20211014
  Serious: No
  Sender: FDA-Public Use
  Company Number: NVSC2021US190602

PATIENT
  Sex: Female

DRUGS (1)
  1. TABRECTA [Suspect]
     Active Substance: CAPMATINIB
     Indication: NON-SMALL CELL LUNG CANCER
     Dosage: 400 MG, BID
     Route: 048
     Dates: start: 20210804

REACTIONS (7)
  - Nasal congestion [Unknown]
  - Dizziness [Unknown]
  - Hypersensitivity [Unknown]
  - Urinary tract infection [Unknown]
  - Product dose omission issue [Unknown]
  - Asthenia [Unknown]
  - Nausea [Unknown]
